FAERS Safety Report 18615030 (Version 1)
Quarter: 2020Q4

REPORT INFORMATION
  Report Type: Other
  Country: GB (occurrence: GB)
  Receive Date: 20201215
  Receipt Date: 20201215
  Transmission Date: 20210114
  Serious: Yes (Life-Threatening, Hospitalization)
  Sender: FDA-Public Use
  Company Number: GB-NOSTRUM LABORATORIES, INC.-2102989

PATIENT
  Age: 30 Year
  Sex: Male

DRUGS (1)
  1. VENLAFAXINE HYDROCHLORIDE. [Suspect]
     Active Substance: VENLAFAXINE HYDROCHLORIDE
     Indication: DEPRESSION
     Route: 048

REACTIONS (5)
  - Fluid overload [Recovered/Resolved]
  - Pulmonary oedema [Not Recovered/Not Resolved]
  - Hypocalcaemia [Unknown]
  - Pancreatitis acute [Recovered/Resolved]
  - Acute respiratory distress syndrome [Recovered/Resolved]
